FAERS Safety Report 5388955-2 (Version None)
Quarter: 2007Q3

REPORT INFORMATION
  Report Type: 
  Country: None (occurrence: None)
  Receive Date: 20070717
  Receipt Date: 20070709
  Transmission Date: 20080115
  Serious: Yes (Hospitalization)
  Sender: FDA-Public Use
  Company Number: PHBS2007JP10987

PATIENT
  Age: 32 Year
  Sex: Female

DRUGS (2)
  1. TOFRANIL [Suspect]
     Indication: DEPRESSION
     Route: 048
  2. TOFRANIL [Suspect]
     Dosage: 3650 MG, ONCE/SINGLE
     Route: 048

REACTIONS (6)
  - DEPRESSED LEVEL OF CONSCIOUSNESS [None]
  - ELECTROCARDIOGRAM QT PROLONGED [None]
  - GLOSSOPTOSIS [None]
  - OVERDOSE [None]
  - SHOCK [None]
  - VENTRICULAR TACHYCARDIA [None]
